FAERS Safety Report 12248107 (Version 1)
Quarter: 2016Q2

REPORT INFORMATION
  Report Type: Spontaneous
  Country: GB (occurrence: GB)
  Receive Date: 20160408
  Receipt Date: 20160408
  Transmission Date: 20160815
  Serious: Yes (Hospitalization, Disabling)
  Sender: FDA-Public Use
  Company Number: GB-PFIZER INC-2016185752

PATIENT
  Age: 69 Year
  Sex: Female

DRUGS (3)
  1. PARACETAMOL [Concomitant]
     Active Substance: ACETAMINOPHEN
     Dosage: UNK
  2. RANITIDINE. [Concomitant]
     Active Substance: RANITIDINE
     Dosage: 150 MG, 2X/DAY
  3. CRIZOTINIB [Suspect]
     Active Substance: CRIZOTINIB
     Indication: ADENOCARCINOMA
     Dosage: 200 MG, 1X/DAY
     Route: 048
     Dates: start: 20151112, end: 20160121

REACTIONS (5)
  - Disease progression [Not Recovered/Not Resolved]
  - Nausea [Not Recovered/Not Resolved]
  - Pulmonary embolism [Not Recovered/Not Resolved]
  - Pulmonary hypertension [Not Recovered/Not Resolved]
  - Adenocarcinoma [Not Recovered/Not Resolved]

NARRATIVE: CASE EVENT DATE: 20151112
